FAERS Safety Report 6088181-8 (Version None)
Quarter: 2009Q1

REPORT INFORMATION
  Report Type: 
  Country: None (occurrence: None)
  Receive Date: 20090224
  Receipt Date: 20090217
  Transmission Date: 20090719
  Serious: No
  Sender: FDA-Public Use
  Company Number: US-JNJFOC-20090204630

PATIENT
  Sex: Male
  Weight: 81.65 kg

DRUGS (3)
  1. DURAGESIC-100 [Suspect]
     Indication: PAIN
     Route: 062
  2. PERCOCET [Concomitant]
     Indication: PAIN
     Dosage: 10/325MG
     Route: 048
  3. XANAX [Concomitant]
     Indication: ANXIETY
     Route: 048

REACTIONS (4)
  - DEVICE LEAKAGE [None]
  - EUPHORIC MOOD [None]
  - INCORRECT DRUG ADMINISTRATION DURATION [None]
  - MALAISE [None]
